FAERS Safety Report 9465546 (Version 1)
Quarter: 2013Q3

REPORT INFORMATION
  Report Type: Spontaneous
  Country: US (occurrence: US)
  Receive Date: 20130820
  Receipt Date: 20130820
  Transmission Date: 20140515
  Serious: No
  Sender: FDA-Public Use
  Company Number: US-TEVA-426993USA

PATIENT
  Age: 97 Year
  Sex: Male
  Weight: 77.18 kg

DRUGS (14)
  1. NUVIGIL [Suspect]
     Indication: FATIGUE
     Route: 048
  2. SERTRALINE [Concomitant]
  3. LOSARTAN [Concomitant]
     Indication: HYPERTENSION
  4. GLIPIZIDE [Concomitant]
     Indication: DIABETES MELLITUS
  5. VITAMIN B12 [Concomitant]
  6. DEXILANT [Concomitant]
  7. ASPIRIN [Concomitant]
  8. IRON [Concomitant]
  9. FOLIC ACID [Concomitant]
  10. CRESTOR [Concomitant]
     Indication: HYPERCHOLESTEROLAEMIA
  11. KEPPRA [Concomitant]
  12. AMITZA [Concomitant]
     Indication: CONSTIPATION
  13. NUTRILAX [Concomitant]
     Indication: CONSTIPATION
  14. DULCOLAX [Concomitant]
     Indication: CONSTIPATION

REACTIONS (2)
  - Anaemia [Unknown]
  - Off label use [Unknown]
